FAERS Safety Report 6422123-8 (Version None)
Quarter: 2009Q4

REPORT INFORMATION
  Report Type: 
  Country: None (occurrence: None)
  Receive Date: 20091030
  Receipt Date: 20091016
  Transmission Date: 20100525
  Serious: Yes (Other)
  Sender: FDA-Public Use
  Company Number: FR-PFIZER INC-2005120890

PATIENT
  Age: 70 Year

DRUGS (8)
  1. EXEMESTANE [Suspect]
     Indication: BREAST CANCER
     Dosage: 25 MG, 1X/DAY
     Route: 048
     Dates: start: 20030514, end: 20080201
  2. IMOVANE [Concomitant]
     Indication: INSOMNIA
     Route: 065
     Dates: start: 19890101
  3. PIASCLEDINE [Concomitant]
     Indication: MUSCULOSKELETAL CHEST PAIN
     Route: 065
     Dates: start: 20040219
  4. AOTAL [Concomitant]
     Indication: ALCOHOLISM
     Route: 065
     Dates: start: 19980101
  5. TROPHIGIL [Concomitant]
     Indication: VULVOVAGINAL DRYNESS
     Route: 065
     Dates: start: 20050101
  6. LOVENOX [Concomitant]
     Indication: THROMBOSIS PROPHYLAXIS
     Route: 065
     Dates: start: 20050101
  7. POLY-KARAYA [Concomitant]
     Indication: GASTROINTESTINAL DISORDER
     Route: 065
     Dates: start: 20050722
  8. METFORMINE ^MERCK^ [Concomitant]
     Route: 065

REACTIONS (1)
  - FRACTURE [None]
